FAERS Safety Report 14802868 (Version 2)
Quarter: 2019Q3

REPORT INFORMATION
  Report Type: Spontaneous
  Country: CA (occurrence: CA)
  Receive Date: 20180424
  Receipt Date: 20190730
  Transmission Date: 20191004
  Serious: Yes (Other)
  Sender: FDA-Public Use
  Company Number: CA-PFIZER INC-2018162673

PATIENT
  Age: 47 Year
  Sex: Male

DRUGS (17)
  1. PMS CLONAZEPAM [Concomitant]
     Dosage: 1/2 TO 11MG TABLET 1X/DAY AS NEEDED
  2. INFLECTRA [Concomitant]
     Active Substance: INFLIXIMAB-DYYB
     Indication: CROHN^S DISEASE
     Dosage: 5 MG/KG, EVERY 0, 2, 6 WEEKS, THEN EVERY 8 WEEKS
     Route: 042
     Dates: start: 20180413
  3. VITAMIN B12 [Concomitant]
     Active Substance: CYANOCOBALAMIN
     Dosage: 250 MG, 1X/DAY
     Route: 048
  4. COLESTID [Concomitant]
     Active Substance: COLESTIPOL HYDROCHLORIDE
     Dosage: 2 G, 2X/DAY
  5. PMS-HYDROMORPHONE [Concomitant]
     Active Substance: HYDROMORPHONE HYDROCHLORIDE
     Indication: PAIN
     Dosage: 1 MG, EVERY 3 HOURS AS NEEDED
  6. VENLAFAXINE XR [Concomitant]
     Active Substance: VENLAFAXINE HYDROCHLORIDE
     Dosage: 75 MG, 1X/DAY
  7. PMS-LOPERAMIDE [Concomitant]
     Indication: DIARRHOEA
     Dosage: 2 MG, 2X/DAY AS NEEDED
  8. METRONIDAZOLE. [Concomitant]
     Active Substance: METRONIDAZOLE
     Indication: CELLULITIS
     Dosage: 500 MG, 3X/DAY UNTIL 23MAR2018
     Route: 048
  9. VIAGRA [Suspect]
     Active Substance: SILDENAFIL CITRATE
     Dosage: 1/2 TO 1 TABLET OF 100 MG BEFORE SEXUAL ACTIVITY
  10. ROGAINE [Concomitant]
     Active Substance: MINOXIDIL
     Dosage: 1 ML, SOLUTION ON SCALP
  11. ZOPICLONE [Concomitant]
     Active Substance: ZOPICLONE
     Indication: INSOMNIA
     Dosage: 1/2  TO 1 7.5MG TAB, DAILY
  12. CIPROFLOXACIN. [Concomitant]
     Active Substance: CIPROFLOXACIN
     Indication: CELLULITIS
     Dosage: 500 MG, 2X/DAY UNTIL 23MAR2018
     Route: 048
  13. HUMIRA [Concomitant]
     Active Substance: ADALIMUMAB
     Dosage: 40 MG, EVERY 2 WEEKS
     Dates: start: 2016, end: 20180311
  14. MINT RISPERIDON [Concomitant]
     Dosage: 0.5 MG, 1X/DAY (AT BEDTIME)
  15. CELECOXIB. [Concomitant]
     Active Substance: CELECOXIB
     Dosage: 100 MG, 2X/DAY
  16. AZATHIOPRINE. [Concomitant]
     Active Substance: AZATHIOPRINE
     Dosage: 50 MG, X 4
     Dates: start: 20180404
  17. BUPROPION HYDROCHLORIDE XL [Concomitant]
     Active Substance: BUPROPION HYDROCHLORIDE
     Dosage: 300 MG, 1X/DAY

REACTIONS (2)
  - Crohn^s disease [Unknown]
  - Phlebitis [Unknown]
